FAERS Safety Report 6209859-9 (Version None)
Quarter: 2009Q2

REPORT INFORMATION
  Report Type: 
  Country: None (occurrence: None)
  Receive Date: 20090601
  Receipt Date: 20090522
  Transmission Date: 20091009
  Serious: Yes (Hospitalization)
  Sender: FDA-Public Use
  Company Number: US-CELGENEUS-163-50794-09051676

PATIENT
  Sex: Male

DRUGS (4)
  1. VIDAZA [Suspect]
     Route: 051
     Dates: start: 20090518, end: 20090519
  2. VIDAZA [Suspect]
     Route: 051
     Dates: start: 20090521
  3. VELCADE [Suspect]
     Dates: start: 20090518, end: 20090519
  4. VELCADE [Suspect]
     Dates: start: 20090521

REACTIONS (1)
  - TUMOUR LYSIS SYNDROME [None]
